FAERS Safety Report 17410850 (Version 1)
Quarter: 2020Q1

REPORT INFORMATION
  Report Type: Spontaneous
  Country: DE (occurrence: DE)
  Receive Date: 20200212
  Receipt Date: 20200212
  Transmission Date: 20200409
  Serious: Yes (Other)
  Sender: FDA-Public Use
  Company Number: NVSC2020DE034502

PATIENT
  Sex: Male

DRUGS (3)
  1. AZARGA [Suspect]
     Active Substance: BRINZOLAMIDE\TIMOLOL MALEATE
     Indication: INTRAOCULAR PRESSURE DECREASED
     Route: 047
  2. SIMBRINZA [Suspect]
     Active Substance: BRIMONIDINE TARTRATE\BRINZOLAMIDE
     Indication: INTRAOCULAR PRESSURE DECREASED
     Route: 047
  3. MONOPROST [Suspect]
     Active Substance: LATANOPROST
     Indication: INTRAOCULAR PRESSURE DECREASED
     Route: 047

REACTIONS (3)
  - Heart rate increased [Unknown]
  - Hypertension [Unknown]
  - Arrhythmia [Unknown]
